FAERS Safety Report 6011442-5 (Version None)
Quarter: 2008Q4

REPORT INFORMATION
  Report Type: 
  Country: None (occurrence: None)
  Receive Date: 20081218
  Receipt Date: 20081209
  Transmission Date: 20090506
  Serious: Yes (Death)
  Sender: FDA-Public Use
  Company Number: IL-CELGENEUS-082-C5013-08120576

PATIENT
  Age: 72 Year
  Sex: Female

DRUGS (2)
  1. REVLIMID [Suspect]
     Indication: MYELODYSPLASTIC SYNDROME
     Route: 048
     Dates: start: 20080601
  2. REVLIMID [Suspect]
     Route: 048
     Dates: start: 20080801

REACTIONS (1)
  - MUCORMYCOSIS [None]
